FAERS Safety Report 24440491 (Version 2)
Quarter: 2024Q4

REPORT INFORMATION
  Report Type: Report from Study
  Country: JP (occurrence: JP)
  Receive Date: 20241016
  Receipt Date: 20241128
  Transmission Date: 20250115
  Serious: Yes (Other)
  Sender: CSL BEHRING
  Company Number: JP-BEH-2024181319

PATIENT
  Age: 4 Year
  Sex: Male

DRUGS (5)
  1. IDELVION [Suspect]
     Active Substance: COAGULATION FACTOR IX RECOMBINANT HUMAN
     Indication: Haemorrhage prophylaxis
     Dosage: 500 IU, SINGLE
     Route: 065
     Dates: start: 20201022, end: 20201022
  2. IDELVION [Suspect]
     Active Substance: COAGULATION FACTOR IX RECOMBINANT HUMAN
     Indication: Haemorrhage prophylaxis
     Dosage: 500 IU, SINGLE
     Route: 065
     Dates: start: 20201022, end: 20201022
  3. IDELVION [Suspect]
     Active Substance: COAGULATION FACTOR IX RECOMBINANT HUMAN
     Dosage: 500 IU, SINGLE
     Route: 065
     Dates: start: 20210824, end: 20210824
  4. IDELVION [Suspect]
     Active Substance: COAGULATION FACTOR IX RECOMBINANT HUMAN
     Dosage: 500 IU, SINGLE
     Route: 065
     Dates: start: 20210824, end: 20210824
  5. TRANEXAMIC ACID [Concomitant]
     Active Substance: TRANEXAMIC ACID
     Indication: Haemostasis
     Dosage: 83-167 MG, PRN
     Route: 048

REACTIONS (2)
  - Haemorrhage [Recovered/Resolved]
  - Haemorrhage [Recovered/Resolved]

NARRATIVE: CASE EVENT DATE: 20201022
